FAERS Safety Report 4574172-2 (Version None)
Quarter: 2005Q1

REPORT INFORMATION
  Report Type: 
  Country: None (occurrence: None)
  Receive Date: 20050208
  Receipt Date: 20041109
  Transmission Date: 20050727
  Serious: No
  Sender: FDA-Public Use
  Company Number: US-GLAXOSMITHKLINE-A0533253A

PATIENT
  Age: 58 Year
  Sex: Female
  Weight: 59.1 kg

DRUGS (6)
  1. PAXIL [Suspect]
     Indication: DEPRESSION
     Dosage: 40MG TWICE PER DAY
     Route: 048
     Dates: start: 20030101
  2. BUSPAR [Concomitant]
  3. TRAZODONE [Concomitant]
  4. FOSAMAX [Concomitant]
  5. CALCIUM GLUCONATE [Concomitant]
  6. MULTIVITAMIN [Concomitant]

REACTIONS (3)
  - AGITATION [None]
  - ANGER [None]
  - IRRITABILITY [None]
